FAERS Safety Report 8006340-1 (Version None)
Quarter: 2011Q4

REPORT INFORMATION
  Report Type: 
  Country: None (occurrence: None)
  Receive Date: 20111226
  Receipt Date: 20111221
  Transmission Date: 20120403
  Serious: Yes (Other)
  Sender: FDA-Public Use
  Company Number: PHHY2011CA097257

PATIENT
  Sex: Female

DRUGS (1)
  1. ZOLEDRONOC ACID [Suspect]
     Indication: OSTEOPOROSIS
     Dosage: UNK UKN, UNK
     Route: 042
     Dates: start: 20100423

REACTIONS (6)
  - PNEUMONIA [None]
  - BONE LOSS [None]
  - CHILLS [None]
  - DYSPNOEA [None]
  - LOCALISED INFECTION [None]
  - BRUXISM [None]
